FAERS Safety Report 17765450 (Version 2)
Quarter: 2020Q2

REPORT INFORMATION
  Report Type: Spontaneous
  Country: US (occurrence: US)
  Receive Date: 20200511
  Receipt Date: 20200630
  Transmission Date: 20200714
  Serious: Yes (Death, Hospitalization)
  Sender: FDA-Public Use
  Company Number: US-ROCHE-2596204

PATIENT
  Age: 71 Year
  Sex: Male

DRUGS (13)
  1. ALBUTEROL HFA [Concomitant]
     Active Substance: ALBUTEROL SULFATE
  2. ATORVASTATIN [Concomitant]
     Active Substance: ATORVASTATIN
  3. TIKOSYN [Concomitant]
     Active Substance: DOFETILIDE
  4. METOPROLOL. [Concomitant]
     Active Substance: METOPROLOL
  5. ESBRIET [Suspect]
     Active Substance: PIRFENIDONE
     Indication: IDIOPATHIC PULMONARY FIBROSIS
     Dosage: MAX DOSE, ONGOING: NO
     Route: 048
     Dates: start: 20200313, end: 202004
  6. LISINOPRIL. [Concomitant]
     Active Substance: LISINOPRIL
  7. KLOR-CON [Concomitant]
     Active Substance: POTASSIUM CHLORIDE
  8. XARELTO [Concomitant]
     Active Substance: RIVAROXABAN
  9. LEVEMIR [Concomitant]
     Active Substance: INSULIN DETEMIR
  10. NOVOLOG [Concomitant]
     Active Substance: INSULIN ASPART
  11. BREO ELLIPTA [Concomitant]
     Active Substance: FLUTICASONE FUROATE\VILANTEROL TRIFENATATE
  12. FUROSEMIDE. [Concomitant]
     Active Substance: FUROSEMIDE
  13. OMEPRAZOLE. [Concomitant]
     Active Substance: OMEPRAZOLE

REACTIONS (7)
  - Abdominal pain upper [Recovered/Resolved]
  - Abdominal discomfort [Recovered/Resolved]
  - Oxygen saturation decreased [Not Recovered/Not Resolved]
  - Dyspnoea [Not Recovered/Not Resolved]
  - Respiratory failure [Fatal]
  - Pneumonia bacterial [Fatal]
  - Diarrhoea [Recovering/Resolving]

NARRATIVE: CASE EVENT DATE: 20200518
